FAERS Safety Report 13554043 (Version 1)
Quarter: 2017Q2

REPORT INFORMATION
  Report Type: Spontaneous
  Country: US (occurrence: US)
  Receive Date: 20170517
  Receipt Date: 20170517
  Transmission Date: 20170830
  Serious: No
  Sender: FDA-Public Use
  Company Number: US-VERNALIS THERAPEUTICS, INC.-2017VRN00009

PATIENT
  Age: 18 Year
  Sex: Female

DRUGS (1)
  1. TUZISTRA XR [Suspect]
     Active Substance: CHLORPHENIRAMINE MALEATE\CODEINE PHOSPHATE ANHYDROUS
     Indication: COUGH
     Dosage: 1 TSP, ONCE
     Route: 048
     Dates: start: 20161128, end: 20161128

REACTIONS (2)
  - Drug screen positive [None]
  - Road traffic accident [Recovered/Resolved]

NARRATIVE: CASE EVENT DATE: 20161129
